FAERS Safety Report 23366662 (Version 1)
Quarter: 2024Q1

REPORT INFORMATION
  Report Type: Spontaneous
  Country: US (occurrence: None)
  Receive Date: 20240104
  Receipt Date: 20240104
  Transmission Date: 20240409
  Serious: Yes (Other)
  Sender: FDA-Public Use
  Company Number: None

PATIENT
  Age: 43 Year
  Sex: Male
  Weight: 88.2 kg

DRUGS (8)
  1. VIVITROL [Suspect]
     Active Substance: NALTREXONE
     Indication: Alcohol abuse
     Dosage: OTHER FREQUENCY : MONTHLY;?
     Route: 030
     Dates: start: 20231221, end: 20240104
  2. VIVITROL [Suspect]
     Active Substance: NALTREXONE
     Indication: Alcohol withdrawal syndrome
  3. MELOXICAM [Concomitant]
     Active Substance: MELOXICAM
  4. NALTREXONE HYDROCHLORIDE [Concomitant]
     Active Substance: NALTREXONE HYDROCHLORIDE
  5. GABAPENTIN [Concomitant]
     Active Substance: GABAPENTIN
  6. JARDIANCE [Concomitant]
     Active Substance: EMPAGLIFLOZIN
  7. SYMBICORT [Concomitant]
     Active Substance: BUDESONIDE\FORMOTEROL FUMARATE DIHYDRATE
  8. PROTONIX [Concomitant]
     Active Substance: PANTOPRAZOLE SODIUM

REACTIONS (5)
  - Injection site induration [None]
  - Injection site pain [None]
  - Injection site haematoma [None]
  - Injection site swelling [None]
  - Purulent discharge [None]

NARRATIVE: CASE EVENT DATE: 20231221
